FAERS Safety Report 8333150-8 (Version None)
Quarter: 2012Q2

REPORT INFORMATION
  Report Type: 
  Country: None (occurrence: None)
  Receive Date: 20120503
  Receipt Date: 20120426
  Transmission Date: 20120825
  Serious: Yes (Other)
  Sender: FDA-Public Use
  Company Number: US-TEVA-335247USA

PATIENT
  Sex: Female
  Weight: 55.388 kg

DRUGS (6)
  1. FLUTICASONE PROPIONATE/SALMETEROL [Concomitant]
  2. SALBUTAMOL (PROAIR) [Concomitant]
  3. TIOTROPIUM BROMIDE [Concomitant]
     Dates: start: 20120101
  4. BUDESONIDE [Suspect]
  5. BROVANA [Suspect]
     Indication: CHRONIC OBSTRUCTIVE PULMONARY DISEASE
     Dosage: 15 UG
     Route: 055
     Dates: start: 20120101
  6. NAPROXEN [Suspect]
     Indication: PAIN MANAGEMENT

REACTIONS (5)
  - CHEST DISCOMFORT [None]
  - PAIN IN EXTREMITY [None]
  - DYSPNOEA [None]
  - MYOCARDIAL INFARCTION [None]
  - HYPOAESTHESIA [None]
